FAERS Safety Report 5855510-7 (Version None)
Quarter: 2008Q3

REPORT INFORMATION
  Report Type: 
  Country: None (occurrence: None)
  Receive Date: 20080821
  Receipt Date: 20080812
  Transmission Date: 20090109
  Serious: Yes (Hospitalization)
  Sender: FDA-Public Use
  Company Number: 92342

PATIENT
  Age: 90 Year
  Sex: Female

DRUGS (1)
  1. SIMVASTATIN [Suspect]
     Indication: HYPERLIPIDAEMIA
     Dosage: 20 MG/DAILY/ORALLY
     Route: 048

REACTIONS (13)
  - BLOOD CREATININE INCREASED [None]
  - BLOOD UREA INCREASED [None]
  - DIARRHOEA [None]
  - DRUG TOXICITY [None]
  - DYSARTHRIA [None]
  - FACIAL PALSY [None]
  - HEMIPARESIS [None]
  - HYPOGLYCAEMIA [None]
  - HYPOPHAGIA [None]
  - LETHARGY [None]
  - LEUKOCYTOSIS [None]
  - METABOLIC ACIDOSIS [None]
  - TRANSAMINASES INCREASED [None]
